FAERS Safety Report 8465009-X (Version None)
Quarter: 2012Q2

REPORT INFORMATION
  Report Type: 
  Country: None (occurrence: None)
  Receive Date: 20120618
  Receipt Date: 20120507
  Transmission Date: 20120825
  Serious: Yes (Other)
  Sender: FDA-Public Use
  Company Number: 2012P1023643

PATIENT
  Age: 35 Year
  Sex: Male
  Weight: 94 kg

DRUGS (3)
  1. HYDROMORPHONE HCL [Suspect]
     Indication: ABDOMINAL PAIN
     Dosage: 3 MG;Q4H;PRN;IV
     Route: 042
  2. HYDROMORPHONE HCL [Suspect]
     Dosage: 3 MG;Q3HX6;IM
     Route: 030
  3. OXYCODONE/ACETAMINOPHEN 5MG/325MG (NO PREF. NAME) [Suspect]
     Indication: HEADACHE
     Dosage: 5/325 MG;UPTO QID;PO
     Route: 048

REACTIONS (4)
  - MEDICATION ERROR [None]
  - PULSE ABSENT [None]
  - SNORING [None]
  - RESPIRATORY ARREST [None]
